FAERS Safety Report 9317731 (Version 1)
Quarter: 2013Q2

REPORT INFORMATION
  Report Type: Spontaneous
  Country: US (occurrence: US)
  Receive Date: 20130530
  Receipt Date: 20130530
  Transmission Date: 20140414
  Serious: No
  Sender: FDA-Public Use
  Company Number: US-NOVEN-12US005362

PATIENT
  Sex: Female

DRUGS (1)
  1. DAYTRANA [Suspect]
     Indication: PRODUCT USED FOR UNKNOWN INDICATION
     Dosage: 20 MG, QOD
     Route: 062
     Dates: start: 201203, end: 201204

REACTIONS (4)
  - Application site rash [Recovered/Resolved]
  - Application site irritation [Recovered/Resolved]
  - Off label use [Recovered/Resolved]
  - Drug prescribing error [Recovered/Resolved]
